FAERS Safety Report 4599525-8 (Version None)
Quarter: 2005Q1

REPORT INFORMATION
  Report Type: 
  Country: None (occurrence: None)
  Receive Date: 20050307
  Receipt Date: 20050222
  Transmission Date: 20050727
  Serious: Yes (Hospitalization)
  Sender: FDA-Public Use
  Company Number: BR-JNJFOC-20050206365

PATIENT
  Age: 24 Month
  Sex: Male
  Weight: 10 kg

DRUGS (1)
  1. HALDOL [Suspect]

REACTIONS (4)
  - ACCIDENTAL EXPOSURE [None]
  - DECREASED ACTIVITY [None]
  - NEUROMYOPATHY [None]
  - SOMNOLENCE [None]
